FAERS Safety Report 25963880 (Version 1)
Quarter: 2025Q4

REPORT INFORMATION
  Report Type: Spontaneous
  Country: US (occurrence: None)
  Receive Date: 20251025
  Receipt Date: 20251025
  Transmission Date: 20260118
  Serious: No
  Sender: FDA-CTU
  Company Number: None

PATIENT
  Sex: Female

DRUGS (1)
  1. RINVOQ [Suspect]
     Active Substance: UPADACITINIB
     Indication: Crohn^s disease
     Dosage: FREQUENCY : DAILY;?
     Route: 048
     Dates: start: 20250908

REACTIONS (2)
  - Adverse event [None]
  - Therapy cessation [None]
